FAERS Safety Report 9687277 (Version 1)
Quarter: 2013Q4

REPORT INFORMATION
  Report Type: Spontaneous
  Country: DK (occurrence: DK)
  Receive Date: 20131114
  Receipt Date: 20131114
  Transmission Date: 20140711
  Serious: Yes (Hospitalization)
  Sender: FDA-Public Use
  Company Number: DK-AMGEN-DNKSP2013078890

PATIENT
  Age: 70 Year
  Sex: Male
  Weight: 74 kg

DRUGS (6)
  1. XGEVA [Suspect]
     Indication: METASTASES TO BONE
     Dosage: STYRKE: 120 MG
     Route: 058
     Dates: start: 20121004
  2. PAMOL [Concomitant]
     Indication: ANALGESIC THERAPY
  3. SERTRALIN                          /01011401/ [Concomitant]
     Indication: DEPRESSION
     Dates: start: 20121203
  4. PANTOPRAZOL [Concomitant]
     Indication: GASTROOESOPHAGEAL REFLUX DISEASE
     Dates: start: 20121203
  5. TAMSULOSINHYDROCHLORID AWD [Concomitant]
     Indication: MICTURITION DISORDER
     Dates: start: 20121203
  6. ANDROCUR [Concomitant]
     Indication: HORMONE THERAPY
     Dates: start: 20130308

REACTIONS (1)
  - Osteonecrosis [Not Recovered/Not Resolved]
